FAERS Safety Report 9797986 (Version 3)
Quarter: 2014Q1

REPORT INFORMATION
  Report Type: Report from Study
  Country: US (occurrence: US)
  Receive Date: 20140106
  Receipt Date: 20140317
  Transmission Date: 20141002
  Serious: Yes (Life-Threatening)
  Sender: FDA-Public Use
  Company Number: PHEH2014US000486

PATIENT
  Sex: Male

DRUGS (3)
  1. AFINITOR [Suspect]
     Dosage: 10 MG, QD
     Route: 048
  2. AFINITOR [Suspect]
     Dosage: 5 MG, QD
     Route: 048
  3. SANDOSTATIN LAR [Suspect]
     Dosage: 30 MG

REACTIONS (4)
  - Apparent death [Unknown]
  - Weight decreased [Unknown]
  - Abdominal discomfort [Unknown]
  - Diarrhoea [Not Recovered/Not Resolved]
